FAERS Safety Report 8596526-X (Version None)
Quarter: 2012Q3

REPORT INFORMATION
  Report Type: 
  Country: None (occurrence: None)
  Receive Date: 20120815
  Receipt Date: 20120705
  Transmission Date: 20120928
  Serious: No
  Sender: FDA-Public Use
  Company Number: US-ASTRAZENECA-2012SE31852

PATIENT
  Age: 57 Year
  Sex: Female

DRUGS (1)
  1. NEXIUM [Suspect]
     Route: 048

REACTIONS (4)
  - HYPOKINESIA [None]
  - MALAISE [None]
  - ACCIDENT AT WORK [None]
  - INTENTIONAL DRUG MISUSE [None]
